FAERS Safety Report 9579540 (Version 1)
Quarter: 2013Q4

REPORT INFORMATION
  Report Type: Spontaneous
  Country: US (occurrence: US)
  Receive Date: 20131001
  Receipt Date: 20131001
  Transmission Date: 20140711
  Serious: No
  Sender: FDA-Public Use
  Company Number: US-AMGEN-USASP2013030050

PATIENT
  Age: 63 Year
  Sex: Male

DRUGS (4)
  1. PROCRIT [Suspect]
     Indication: ANAEMIA
     Dosage: UNK
     Dates: start: 201212
  2. INCIVEK [Suspect]
     Indication: HEPATITIS C
     Dosage: UNK
     Route: 048
     Dates: start: 20120924, end: 20121128
  3. RIBAVIRIN [Suspect]
     Indication: HEPATITIS C
     Dosage: UNK
     Dates: start: 20120924, end: 20130125
  4. PEGASYS [Suspect]
     Indication: HEPATITIS C
     Dosage: UNK
     Dates: start: 20120924, end: 20130125

REACTIONS (4)
  - Pertussis [Not Recovered/Not Resolved]
  - White blood cell count decreased [Not Recovered/Not Resolved]
  - Feeling abnormal [Unknown]
  - Platelet count decreased [Not Recovered/Not Resolved]
